FAERS Safety Report 5515649-2 (Version None)
Quarter: 2007Q4

REPORT INFORMATION
  Report Type: 
  Country: None (occurrence: None)
  Receive Date: 20071113
  Receipt Date: 20070724
  Transmission Date: 20080405
  Serious: No
  Sender: FDA-Public Use
  Company Number: A0666066A

PATIENT
  Age: 56 Year
  Sex: Female

DRUGS (6)
  1. COREG [Suspect]
     Dosage: 25MG TWICE PER DAY
     Route: 048
     Dates: start: 20050101, end: 20070529
  2. COREG CR [Suspect]
     Dosage: 80MG PER DAY
     Route: 048
     Dates: start: 20070530
  3. VASOTEC [Concomitant]
  4. PRAVACHOL [Concomitant]
  5. ALPRAZOLAM [Concomitant]
  6. VITAMIN CAP [Concomitant]

REACTIONS (1)
  - FATIGUE [None]
